FAERS Safety Report 17573041 (Version 3)
Quarter: 2021Q4

REPORT INFORMATION
  Report Type: Spontaneous
  Country: IT (occurrence: IT)
  Receive Date: 20200323
  Receipt Date: 20211025
  Transmission Date: 20220303
  Serious: Yes (Other)
  Sender: FDA-Public Use
  Company Number: IT-GLAXOSMITHKLINE-IT2020GSK025294

PATIENT
  Age: 29 Year
  Sex: Female

DRUGS (4)
  1. IBUPROFEN [Suspect]
     Active Substance: IBUPROFEN
     Indication: Toothache
     Dosage: 600 MG, BID
     Route: 065
  2. IBUPROFEN [Suspect]
     Active Substance: IBUPROFEN
     Dosage: 1 DOSAGE FORM, BID
  3. AMOXICILLIN+CLAVULANIC ACID        /02043401/ [Concomitant]
     Indication: Toothache
     Dosage: 1 G, BID
  4. AMOXICILLIN+CLAVULANIC ACID        /02043401/ [Concomitant]
     Dosage: 1 GR TABLET, BID

REACTIONS (14)
  - Musculoskeletal stiffness [Recovered/Resolved]
  - C-reactive protein increased [Recovered/Resolved]
  - Skin test positive [Recovered/Resolved]
  - Hyperpyrexia [Recovered/Resolved]
  - Pleocytosis [Recovered/Resolved]
  - CSF protein increased [Recovered/Resolved]
  - Red blood cell sedimentation rate increased [Recovered/Resolved]
  - Photophobia [Recovered/Resolved]
  - Leukocytosis [Recovered/Resolved]
  - CSF glucose increased [Recovered/Resolved]
  - Nausea [Recovered/Resolved]
  - Meningitis aseptic [Recovering/Resolving]
  - Headache [Recovered/Resolved]
  - Type IV hypersensitivity reaction [Recovering/Resolving]
